FAERS Safety Report 10186524 (Version 2)
Quarter: 2014Q2

REPORT INFORMATION
  Report Type: Spontaneous
  Country: DE (occurrence: JP)
  Receive Date: 20140521
  Receipt Date: 20140530
  Transmission Date: 20141212
  Serious: Yes (Other)
  Sender: FDA-Public Use
  Company Number: JP-FRI-1000067523

PATIENT
  Age: 84 Year
  Sex: Female

DRUGS (1)
  1. MEMANTINE [Suspect]

REACTIONS (1)
  - Loss of consciousness [Unknown]
